FAERS Safety Report 9892856 (Version 1)
Quarter: 2014Q1

REPORT INFORMATION
  Report Type: Report from Study
  Country: US (occurrence: US)
  Receive Date: 20140213
  Receipt Date: 20140213
  Transmission Date: 20141002
  Serious: Yes (Death)
  Sender: FDA-Public Use
  Company Number: US-ROCHE-1324189

PATIENT
  Sex: Male
  Weight: 96.25 kg

DRUGS (4)
  1. AVASTIN [Suspect]
     Indication: BRAIN NEOPLASM MALIGNANT
     Dosage: REFERENCE DOSE 10 MG/KG, DOSE 977 MG
     Route: 041
  2. AVASTIN [Suspect]
     Dosage: REFERENCE DOSE 10 MG/KG, DOSE 977 MG
     Route: 042
     Dates: start: 20110527
  3. ZOLOFT [Concomitant]
     Route: 065
  4. CYMBALTA [Concomitant]

REACTIONS (7)
  - Death [Fatal]
  - Fatigue [Unknown]
  - Weight decreased [Unknown]
  - Dyspnoea exertional [Unknown]
  - Psoriasis [Unknown]
  - Mobility decreased [Unknown]
  - Mood altered [Unknown]
